FAERS Safety Report 9850344 (Version 2)
Quarter: 2014Q1

REPORT INFORMATION
  Report Type: Spontaneous
  Country: US (occurrence: US)
  Receive Date: 20140128
  Receipt Date: 20140218
  Transmission Date: 20141002
  Serious: Yes (Hospitalization, Other)
  Sender: FDA-Public Use
  Company Number: US-BAXTER-2014BAX003477

PATIENT
  Sex: Male

DRUGS (2)
  1. DIANEAL LOW CALCIUM [Suspect]
     Indication: PERITONEAL DIALYSIS
     Route: 033
  2. DIANEAL LOW CALCIUM [Suspect]
     Route: 033

REACTIONS (6)
  - Arteriovenous fistula site complication [Unknown]
  - Cardiac disorder [Unknown]
  - Multimorbidity [Unknown]
  - Localised infection [Unknown]
  - Hepatic failure [Unknown]
  - Peritoneal dialysis complication [Unknown]
